FAERS Safety Report 9825618 (Version 1)
Quarter: 2014Q1

REPORT INFORMATION
  Report Type: Spontaneous
  Country: US (occurrence: None)
  Receive Date: 20140115
  Receipt Date: 20140115
  Transmission Date: 20141002
  Serious: Yes (Other)
  Sender: FDA-Public Use
  Company Number: None

PATIENT
  Age: 60 Year
  Sex: Male
  Weight: 98.43 kg

DRUGS (6)
  1. ZYPREXA [Suspect]
     Dosage: 5 MG IN THE MORNING, 20 MG ONCE AT BEDTIME
     Dates: start: 20111110, end: 20130214
  2. ZYPREXA [Suspect]
     Indication: SCHIZOPHRENIA
     Dosage: 5 MG IN THE MORNING, 20 MG ONCE AT BEDTIME
     Dates: start: 20111110, end: 20130214
  3. ZYPREXA [Suspect]
     Dosage: 5 MG IN THE MORNING, 20 MG ONCE AT BEDTIME
     Dates: start: 20111110, end: 20130214
  4. ZYPREXA [Suspect]
     Dosage: 5 MG IN THE MORNING, 20 MG ONCE AT BEDTIME
     Dates: start: 20111110, end: 20130214
  5. CIALIS 20 MG [Suspect]
  6. SILDENAFIL CITRATE [Suspect]

REACTIONS (2)
  - Erectile dysfunction [None]
  - Refusal of treatment by patient [None]
